FAERS Safety Report 8812229 (Version 1)
Quarter: 2012Q4

REPORT INFORMATION
  Report Type: 
  Country: US (occurrence: US)
  Receive Date: 20120927
  Receipt Date: 20120927
  Transmission Date: 20130627
  Serious: Yes (Other)
  Sender: FDA-Public Use
  Company Number: US-BAYER-2012-100924

PATIENT
  Age: 56 Year
  Sex: Female

DRUGS (1)
  1. BETASERON [Suspect]
     Dosage: UNK
     Dates: end: 201203

REACTIONS (1)
  - Injection site infection [Recovered/Resolved]
